FAERS Safety Report 14882389 (Version 1)
Quarter: 2018Q2

REPORT INFORMATION
  Report Type: Spontaneous
  Country: US (occurrence: US)
  Receive Date: 20180425
  Receipt Date: 20180425
  Transmission Date: 20180711
  Serious: Yes (Disabling, Other)
  Sender: FDA-Public Use
  Company Number: None

PATIENT
  Age: 77 Year
  Sex: Female
  Weight: 67.5 kg

DRUGS (1)
  1. DR. SCHOLLS DURAGEL CORN REMOVERS [Suspect]
     Active Substance: SALICYLIC ACID
     Indication: SKIN LESION REMOVAL
     Dates: start: 20180402, end: 20180423

REACTIONS (4)
  - Gait disturbance [None]
  - Cellulitis [None]
  - Contraindicated product administered [None]
  - Diabetic ulcer [None]

NARRATIVE: CASE EVENT DATE: 20180423
